FAERS Safety Report 21780617 (Version 4)
Quarter: 2025Q3

REPORT INFORMATION
  Report Type: Spontaneous
  Country: EU (occurrence: EU)
  Receive Date: 20221227
  Receipt Date: 20250723
  Transmission Date: 20251021
  Serious: Yes (Life-Threatening, Hospitalization, Other)
  Sender: AUROBINDO
  Company Number: EU-INFARMED-J202212-61

PATIENT
  Age: 50 Year
  Sex: Female

DRUGS (4)
  1. DOCETAXEL [Suspect]
     Active Substance: DOCETAXEL
     Indication: Breast cancer
     Route: 042
     Dates: start: 20220829
  2. DOXORUBICIN [Suspect]
     Active Substance: DOXORUBICIN
     Indication: Breast cancer
     Route: 042
     Dates: start: 20220529, end: 20220729
  3. CYCLOPHOSPHAMIDE [Suspect]
     Active Substance: CYCLOPHOSPHAMIDE
     Indication: Breast cancer
     Route: 042
     Dates: start: 20220529, end: 20220729
  4. HERZUMA [Suspect]
     Active Substance: TRASTUZUMAB-PKRB
     Indication: Breast cancer
     Route: 042
     Dates: start: 20220829

REACTIONS (10)
  - Haemophagocytic lymphohistiocytosis [Recovered/Resolved]
  - Cholestasis [Unknown]
  - Hyperferritinaemia [Unknown]
  - Hypertriglyceridaemia [Unknown]
  - Neurological symptom [Unknown]
  - High density lipoprotein increased [Unknown]
  - Lipidosis [Unknown]
  - Off label use [Unknown]
  - Pulmonary toxicity [Unknown]
  - Organising pneumonia [Unknown]

NARRATIVE: CASE EVENT DATE: 20220905
